FAERS Safety Report 8830809 (Version 1)
Quarter: 2012Q4

REPORT INFORMATION
  Report Type: 
  Country: JP (occurrence: JP)
  Receive Date: 20121009
  Receipt Date: 20121009
  Transmission Date: 20130627
  Serious: Yes (Hospitalization)
  Sender: FDA-Public Use
  Company Number: JP-ELI_LILLY_AND_COMPANY-JP201209001009

PATIENT
  Age: 67 None
  Sex: Female

DRUGS (12)
  1. ALIMTA [Suspect]
     Indication: LUNG ADENOCARCINOMA STAGE IV
     Dosage: 750 mg, other
     Route: 042
     Dates: start: 20100723, end: 20100723
  2. ALIMTA [Suspect]
     Dosage: 690 mg, other
     Route: 042
     Dates: start: 20100813, end: 20101020
  3. PANVITAN [Concomitant]
     Dosage: 1 g, qd
  4. BAYASPIRIN [Concomitant]
     Indication: ACUTE MYOCARDIAL INFARCTION
     Dosage: 100 mg, qd
     Route: 048
  5. NU-LOTAN [Concomitant]
     Indication: ACUTE MYOCARDIAL INFARCTION
     Dosage: 50 mg, qd
     Route: 048
  6. LIPITOR [Concomitant]
     Indication: ACUTE MYOCARDIAL INFARCTION
     Dosage: 10 mg, qd
     Route: 048
  7. TAKEPRON [Concomitant]
     Indication: ACUTE MYOCARDIAL INFARCTION
     Dosage: 15 mg, qd
     Route: 048
  8. LASIX [Concomitant]
     Dosage: UNK
  9. MUCOSOLVAN [Concomitant]
     Dosage: UNK
     Route: 048
  10. MEDICON [Concomitant]
     Dosage: 15 mg, tid
     Route: 048
  11. FASTIC [Concomitant]
     Indication: DIABETES MELLITUS
     Dosage: 90 mg, tid
     Route: 048
  12. METHYCOBAL [Concomitant]
     Dosage: UNK
     Route: 030
     Dates: start: 20100716, end: 20100904

REACTIONS (8)
  - Abdominal pain upper [Recovered/Resolved]
  - Cholecystitis [Recovered/Resolved]
  - Neutrophil count decreased [Recovered/Resolved]
  - Platelet count decreased [Recovered/Resolved]
  - Bone marrow failure [Recovering/Resolving]
  - Pigmentation disorder [Recovering/Resolving]
  - Rash [Recovering/Resolving]
  - Rash [Recovering/Resolving]
